FAERS Safety Report 15149887 (Version 2)
Quarter: 2019Q1

REPORT INFORMATION
  Report Type: Spontaneous
  Country: US (occurrence: US)
  Receive Date: 20180716
  Receipt Date: 20190114
  Transmission Date: 20190417
  Serious: No
  Sender: FDA-Public Use
  Company Number: US-VANDA PHARMACEUTICALS, INC-2018TASUS002337

PATIENT
  Age: 60 Year
  Sex: Female

DRUGS (2)
  1. SAVELLA [Concomitant]
     Active Substance: MILNACIPRAN HYDROCHLORIDE
     Indication: PRODUCT USED FOR UNKNOWN INDICATION
     Dosage: 100 MG, BID
     Dates: start: 2012
  2. HETLIOZ [Suspect]
     Active Substance: TASIMELTEON
     Indication: CIRCADIAN RHYTHM SLEEP DISORDER
     Dosage: 20 MG, QHS
     Route: 048
     Dates: start: 20171128

REACTIONS (2)
  - Drug effect decreased [Unknown]
  - Temperature intolerance [Unknown]

NARRATIVE: CASE EVENT DATE: 20180720
